FAERS Safety Report 9171811 (Version 2)
Quarter: 2013Q2

REPORT INFORMATION
  Report Type: Spontaneous
  Country: US (occurrence: US)
  Receive Date: 20130319
  Receipt Date: 20130422
  Transmission Date: 20140414
  Serious: No
  Sender: FDA-Public Use
  Company Number: US-PFIZER INC-2013089032

PATIENT
  Age: 78 Year
  Sex: Female
  Weight: 68 kg

DRUGS (5)
  1. PREMARIN [Suspect]
     Indication: VULVOVAGINAL DRYNESS
     Dosage: UNK, WEEKLY
     Route: 067
     Dates: start: 2012
  2. PREMARIN [Suspect]
     Indication: MENOPAUSE
  3. TRAMADOL [Concomitant]
     Indication: FIBROMYALGIA
     Dosage: 50 MG, AS NEEDED
  4. HYDROXYCHLOROQUINE [Concomitant]
     Indication: FIBROMYALGIA
     Dosage: 300 MG, UNK
  5. GABAPENTIN [Concomitant]
     Indication: FIBROMYALGIA
     Dosage: 300 MG, UNK

REACTIONS (1)
  - Drug ineffective [Unknown]
